FAERS Safety Report 25952857 (Version 1)
Quarter: 2025Q4

REPORT INFORMATION
  Report Type: Spontaneous
  Country: US (occurrence: US)
  Receive Date: 20251023
  Receipt Date: 20251023
  Transmission Date: 20260118
  Serious: Yes (Hospitalization, Other)
  Sender: ELI LILLY AND COMPANY
  Company Number: US-ELI_LILLY_AND_COMPANY-US202510012971

PATIENT
  Age: 75 Year
  Sex: Female

DRUGS (2)
  1. ZEPBOUND [Interacting]
     Active Substance: TIRZEPATIDE
     Indication: Weight control
     Dosage: UNK, UNKNOWN
     Route: 065
  2. CERDELGA [Interacting]
     Active Substance: ELIGLUSTAT
     Indication: Gaucher^s disease
     Dosage: 2 DOSAGE FORM (STRENGTH: 80MG ) , BID
     Route: 048
     Dates: start: 20150811

REACTIONS (4)
  - Bone crisis [Recovering/Resolving]
  - Anxiety [Unknown]
  - Drug interaction [Unknown]
  - Gaucher^s disease [Unknown]

NARRATIVE: CASE EVENT DATE: 20250901
